FAERS Safety Report 7163247-X (Version None)
Quarter: 2010Q4

REPORT INFORMATION
  Report Type: 
  Country: None (occurrence: None)
  Receive Date: 20101215
  Receipt Date: 20100318
  Transmission Date: 20110411
  Serious: Yes (Other)
  Sender: FDA-Public Use
  Company Number: US-PFIZER INC-2010016157

PATIENT
  Sex: Female
  Weight: 91.156 kg

DRUGS (2)
  1. LYRICA [Suspect]
     Indication: NEUROPATHY PERIPHERAL
     Dosage: 50 MG, 1X/DAY
     Dates: start: 20100127, end: 20100127
  2. DILANTIN [Concomitant]
     Indication: BRAIN INJURY
     Dosage: 400 MG, 1X/DAY
     Route: 048
     Dates: start: 19840101

REACTIONS (6)
  - BLOOD PRESSURE DECREASED [None]
  - BRADYCARDIA [None]
  - COORDINATION ABNORMAL [None]
  - DYSARTHRIA [None]
  - SOMNOLENCE [None]
  - VISION BLURRED [None]
